FAERS Safety Report 25563326 (Version 1)
Quarter: 2025Q3

REPORT INFORMATION
  Report Type: Report from Study
  Country: US (occurrence: US)
  Receive Date: 20250716
  Receipt Date: 20250716
  Transmission Date: 20251020
  Serious: Yes (Other)
  Sender: ABBVIE
  Company Number: US-ABBVIE-6369669

PATIENT

DRUGS (1)
  1. UPADACITINIB [Suspect]
     Active Substance: UPADACITINIB
     Indication: Rheumatoid arthritis
     Route: 048
     Dates: start: 20250310

REACTIONS (4)
  - Tenoplasty [Unknown]
  - Foot deformity [Unknown]
  - Rheumatoid nodule [Unknown]
  - Animal bite [Unknown]

NARRATIVE: CASE EVENT DATE: 20250101
